FAERS Safety Report 4853812-4 (Version None)
Quarter: 2005Q4

REPORT INFORMATION
  Report Type: 
  Country: None (occurrence: None)
  Receive Date: 20051213
  Receipt Date: 20051130
  Transmission Date: 20060501
  Serious: Yes (Other)
  Sender: FDA-Public Use
  Company Number: US-2004-033428

PATIENT
  Age: 43 Year
  Sex: Female
  Weight: 60.7 kg

DRUGS (9)
  1. BETASERON [Suspect]
     Indication: RELAPSING-REMITTING MULTIPLE SCLEROSIS
     Dosage: 8 MIU, EVERY 2D, SUBCUTANEOUS
     Route: 058
     Dates: start: 20020805
  2. MICROGESTIN FE [Concomitant]
  3. AMBIEN [Concomitant]
  4. BENADRYL ^ACHE^ (AMMONIUM CHLORIDE, MENTHOL, DIPHENHYDRAMINE HYDROCHLO [Concomitant]
  5. TESTOSTERONE [Concomitant]
  6. XANAX [Concomitant]
  7. OXYCONTIN [Concomitant]
  8. LEXAPRO [Concomitant]
  9. TOPAMAX [Concomitant]

REACTIONS (12)
  - ABDOMINAL PAIN [None]
  - ANOREXIA [None]
  - BOWEL MOVEMENT IRREGULARITY [None]
  - CONDITION AGGRAVATED [None]
  - CRYING [None]
  - DEPRESSION [None]
  - HAEMANGIOMA OF LIVER [None]
  - INJECTION SITE ERYTHEMA [None]
  - INJECTION SITE PAIN [None]
  - INTESTINAL FUNCTIONAL DISORDER [None]
  - UNEVALUABLE EVENT [None]
  - WEIGHT DECREASED [None]
